FAERS Safety Report 7627285-2 (Version None)
Quarter: 2011Q3

REPORT INFORMATION
  Report Type: 
  Country: None (occurrence: None)
  Receive Date: 20110714
  Receipt Date: 20110628
  Transmission Date: 20111222
  Serious: Yes (Hospitalization)
  Sender: FDA-Public Use
  Company Number: PTU-11-06

PATIENT
  Sex: Male

DRUGS (1)
  1. PROPYLTHIOURACIL [Suspect]
     Indication: BASEDOW'S DISEASE
     Dosage: 200MG/DAY

REACTIONS (7)
  - POLYHYDRAMNIOS [None]
  - NEURODEVELOPMENTAL DISORDER [None]
  - MATERNAL DRUGS AFFECTING FOETUS [None]
  - GOITRE CONGENITAL [None]
  - CAESAREAN SECTION [None]
  - CONGENITAL HYPOTHYROIDISM [None]
  - CARDIOMEGALY [None]
